FAERS Safety Report 19177965 (Version 2)
Quarter: 2021Q2

REPORT INFORMATION
  Report Type: Spontaneous
  Country: US (occurrence: US)
  Receive Date: 20210426
  Receipt Date: 20210430
  Transmission Date: 20210717
  Serious: Yes (Other)
  Sender: FDA-Public Use
  Company Number: US-AMGEN-USASP2021060193

PATIENT
  Sex: Female

DRUGS (2)
  1. COVID?19 VACCINE NOS. [Concomitant]
     Active Substance: COVID-19 VACCINE NOS
     Dosage: UNK
  2. OTEZLA [Suspect]
     Active Substance: APREMILAST
     Indication: PRODUCT USED FOR UNKNOWN INDICATION
     Dosage: UNK
     Route: 065
     Dates: start: 201901

REACTIONS (8)
  - Psoriatic arthropathy [Unknown]
  - Psoriasis [Unknown]
  - Taste disorder [Unknown]
  - Pruritus [Unknown]
  - Nausea [Unknown]
  - Diarrhoea [Unknown]
  - Pain [Unknown]
  - Headache [Unknown]
